FAERS Safety Report 6541100-X (Version None)
Quarter: 2010Q1

REPORT INFORMATION
  Report Type: 
  Country: None (occurrence: None)
  Receive Date: 20100118
  Receipt Date: 20100112
  Transmission Date: 20100710
  Serious: Yes (Hospitalization)
  Sender: FDA-Public Use
  Company Number: JP-ROCHE-576294

PATIENT
  Sex: Female
  Weight: 35 kg

DRUGS (11)
  1. TOCILIZUMAB [Suspect]
     Indication: JUVENILE ARTHRITIS
     Route: 041
     Dates: start: 20080630, end: 20080630
  2. PREDONINE [Suspect]
     Indication: DRUG USE FOR UNKNOWN INDICATION
     Route: 048
  3. PREDNISOLONE [Suspect]
     Indication: DRUG USE FOR UNKNOWN INDICATION
     Dosage: ORAL FORMULATION (NOS)
     Route: 048
  4. CORTRIL [Suspect]
     Indication: DRUG USE FOR UNKNOWN INDICATION
     Route: 048
  5. CORTRIL [Suspect]
     Dosage: TAKN AS NEEDED: 5 MG
     Route: 048
  6. IMMUNE GLOBULIN INTRAVENOUS (HUMAN) [Concomitant]
     Dosage: DRUG: GAMMA GLOBULIN
     Route: 030
  7. VOLTAREN [Concomitant]
     Route: 048
  8. TAKEPRON [Concomitant]
     Route: 048
  9. NEORAL [Concomitant]
     Route: 048
  10. DEPROMEL [Concomitant]
     Route: 048
  11. PAXIL [Concomitant]
     Route: 048

REACTIONS (2)
  - CELLULITIS [None]
  - GAMMA-GLUTAMYLTRANSFERASE INCREASED [None]
